FAERS Safety Report 5220251-6 (Version None)
Quarter: 2007Q1

REPORT INFORMATION
  Report Type: 
  Country: None (occurrence: None)
  Receive Date: 20061121
  Receipt Date: 20060726
  Transmission Date: 20070707
  Serious: No
  Sender: FDA-Public Use
  Company Number: TPA2006A01132

PATIENT
  Age: 52 Year
  Sex: Male
  Weight: 65.318 kg

DRUGS (1)
  1. ROZEREM [Suspect]
     Indication: INSOMNIA
     Dosage: 8 MG, QHS, PER ORAL
     Route: 048
     Dates: start: 20060310, end: 20060701

REACTIONS (8)
  - DISSOCIATION [None]
  - DISTURBANCE IN ATTENTION [None]
  - DRUG EFFECT PROLONGED [None]
  - DRUG INEFFECTIVE [None]
  - DYSPHORIA [None]
  - MIDDLE INSOMNIA [None]
  - SLEEP DISORDER [None]
  - SOMNOLENCE [None]
